FAERS Safety Report 6654138-9 (Version None)
Quarter: 2010Q1

REPORT INFORMATION
  Report Type: 
  Country: None (occurrence: None)
  Receive Date: 20100326
  Receipt Date: 20100315
  Transmission Date: 20100710
  Serious: Yes (Other)
  Sender: FDA-Public Use
  Company Number: CL-PFIZER INC-2010034372

PATIENT
  Sex: Male

DRUGS (1)
  1. XALATAN [Suspect]
     Dosage: 1 DROP,1X/DAY
     Route: 047

REACTIONS (4)
  - ABDOMINAL DISCOMFORT [None]
  - BALANCE DISORDER [None]
  - PSYCHIATRIC SYMPTOM [None]
  - SOMNOLENCE [None]
